FAERS Safety Report 9222373 (Version 1)
Quarter: 2013Q2

REPORT INFORMATION
  Report Type: Report from Study
  Country: DK (occurrence: DK)
  Receive Date: 20130410
  Receipt Date: 20130410
  Transmission Date: 20140414
  Serious: Yes (Death)
  Sender: FDA-Public Use
  Company Number: DK-B.I. PHARMACEUTICALS,INC./RIDGEFIELD-2013-BI-09979GD

PATIENT
  Age: 76 Year
  Sex: Male

DRUGS (2)
  1. PRADAXA [Suspect]
     Indication: ATRIAL FIBRILLATION
     Dosage: 300 MG
  2. PRADAXA [Suspect]
     Indication: CEREBROVASCULAR ACCIDENT PROPHYLAXIS

REACTIONS (1)
  - Death [Fatal]
